FAERS Safety Report 24553242 (Version 1)
Quarter: 2024Q4

REPORT INFORMATION
  Report Type: Report from Study
  Country: US (occurrence: US)
  Receive Date: 20241028
  Receipt Date: 20241028
  Transmission Date: 20250115
  Serious: Yes (Other)
  Sender: ABBVIE
  Company Number: US-ABBVIE-5970151

PATIENT
  Age: 52 Year
  Sex: Female
  Weight: 100 kg

DRUGS (11)
  1. HUMIRA [Suspect]
     Active Substance: ADALIMUMAB
     Indication: Sarcoidosis
     Route: 058
     Dates: start: 20221118, end: 20241009
  2. HUMIRA [Suspect]
     Active Substance: ADALIMUMAB
     Indication: Psoriasis
  3. CYMBALTA [Concomitant]
     Active Substance: DULOXETINE HYDROCHLORIDE
     Indication: Depression
  4. GABAPENTIN [Concomitant]
     Active Substance: GABAPENTIN
     Indication: Neuralgia
  5. ALBUTEROL [Concomitant]
     Active Substance: ALBUTEROL
     Indication: Hypersensitivity
  6. VITAMIN D [Concomitant]
     Active Substance: VITAMIN D NOS
     Indication: Vitamin supplementation
  7. ZYRTEC [Concomitant]
     Active Substance: CETIRIZINE HYDROCHLORIDE
     Indication: Multiple allergies
  8. ASPIRIN [Concomitant]
     Active Substance: ASPIRIN
     Indication: Cardiac disorder
  9. JANUVIA [Concomitant]
     Active Substance: SITAGLIPTIN PHOSPHATE
     Indication: Diabetes mellitus
  10. METOPROLOL [Concomitant]
     Active Substance: METOPROLOL
     Indication: Hypertension
  11. MONTELUKAST [Concomitant]
     Active Substance: MONTELUKAST
     Indication: Asthma

REACTIONS (10)
  - Guillain-Barre syndrome [Not Recovered/Not Resolved]
  - Cardiomyopathy [Not Recovered/Not Resolved]
  - Infectious mononucleosis [Unknown]
  - Asthenia [Unknown]
  - Cardiac dysfunction [Not Recovered/Not Resolved]
  - Off label use [Not Recovered/Not Resolved]
  - Serum ferritin increased [Unknown]
  - Muscular weakness [Not Recovered/Not Resolved]
  - Feeling hot [Not Recovered/Not Resolved]
  - Pain in extremity [Not Recovered/Not Resolved]

NARRATIVE: CASE EVENT DATE: 20221101
